FAERS Safety Report 6391379-2 (Version None)
Quarter: 2009Q4

REPORT INFORMATION
  Report Type: 
  Country: None (occurrence: None)
  Receive Date: 20091006
  Receipt Date: 20091006
  Transmission Date: 20100525
  Serious: No
  Sender: FDA-Public Use
  Company Number: None

PATIENT
  Age: 59 Year
  Sex: Female
  Weight: 127.0072 kg

DRUGS (2)
  1. PRISTIQ [Suspect]
     Indication: ANXIETY
     Dosage: 50MG 1 DAILY
     Dates: start: 20090121, end: 20091004
  2. PRISTIQ [Suspect]
     Indication: DEPRESSION
     Dosage: 50MG 1 DAILY
     Dates: start: 20090121, end: 20091004

REACTIONS (2)
  - DRUG WITHDRAWAL SYNDROME [None]
  - EMOTIONAL DISTRESS [None]
